APPROVED DRUG PRODUCT: IBUPROFEN
Active Ingredient: IBUPROFEN
Strength: 100MG/5ML
Dosage Form/Route: SUSPENSION;ORAL
Application: A209207 | Product #001
Applicant: SUN PHARMA CANADA INC
Approved: Jun 27, 2017 | RLD: No | RS: No | Type: OTC